FAERS Safety Report 9646539 (Version 1)
Quarter: 2013Q4

REPORT INFORMATION
  Report Type: Spontaneous
  Country: US (occurrence: US)
  Receive Date: 20131025
  Receipt Date: 20131025
  Transmission Date: 20140711
  Serious: Yes (Hospitalization)
  Sender: FDA-Public Use
  Company Number: US-RB-059844-13

PATIENT
  Sex: Male

DRUGS (1)
  1. SUBOXONE FILM [Suspect]
     Indication: PRODUCT USED FOR UNKNOWN INDICATION
     Dosage: SUBOXONE FILM; CUTTING 2 MG FILM INTO 4 PIECES
     Route: 060

REACTIONS (2)
  - Wrong technique in drug usage process [Not Recovered/Not Resolved]
  - Hospitalisation [Not Recovered/Not Resolved]
